FAERS Safety Report 4954743-1 (Version None)
Quarter: 2006Q1

REPORT INFORMATION
  Report Type: 
  Country: None (occurrence: None)
  Receive Date: 20060322
  Receipt Date: 20060309
  Transmission Date: 20060701
  Serious: Yes (Other)
  Sender: FDA-Public Use
  Company Number: 2006003096

PATIENT
  Age: 67 Year
  Sex: Male

DRUGS (5)
  1. AZITHROMYCIN [Suspect]
     Indication: BRONCHOPNEUMONIA
     Dosage: 500 MG (1 D), ORAL
     Route: 048
     Dates: start: 20051207, end: 20051209
  2. LEFTOSE (LYSOZYME) [Concomitant]
  3. DASEN (SERRAPEPTASE) [Concomitant]
  4. ROCEPHIN [Concomitant]
  5. ISEPACIN (ISEPAMICIN SULFATE) [Concomitant]

REACTIONS (8)
  - ABNORMAL BEHAVIOUR [None]
  - AGITATION [None]
  - DELIRIUM [None]
  - DELUSION [None]
  - INSOMNIA [None]
  - IRRITABILITY [None]
  - NERVOUSNESS [None]
  - REFUSAL OF TREATMENT BY PATIENT [None]
